FAERS Safety Report 5376682-7 (Version None)
Quarter: 2007Q2

REPORT INFORMATION
  Report Type: 
  Country: None (occurrence: None)
  Receive Date: 20070629
  Receipt Date: 20070622
  Transmission Date: 20071010
  Serious: Yes (Hospitalization)
  Sender: FDA-Public Use
  Company Number: 028-C5013-07061280

PATIENT
  Age: 69 Year
  Sex: Male

DRUGS (2)
  1. CC-5013 (LENALIDOMIDE) (CAPSULES) [Suspect]
     Indication: MULTIPLE MYELOMA
     Dosage: 10 MG, QD X21 DAYS, ORAL
     Route: 048
     Dates: start: 20031127
  2. DEXAMETHASONE TAB [Suspect]
     Indication: MULTIPLE MYELOMA
     Dosage: ORAL
     Route: 048
     Dates: start: 20031127

REACTIONS (6)
  - BLOOD CALCIUM DECREASED [None]
  - BLOOD CREATININE INCREASED [None]
  - CONVULSION [None]
  - DERMAL CYST [None]
  - LYMPHOCYTE COUNT INCREASED [None]
  - PLATELET COUNT DECREASED [None]
